FAERS Safety Report 19649080 (Version 2)
Quarter: 2021Q3

REPORT INFORMATION
  Report Type: Spontaneous
  Country: US (occurrence: US)
  Receive Date: 20210802
  Receipt Date: 20210810
  Transmission Date: 20211014
  Serious: Yes (Hospitalization, Other)
  Sender: FDA-Public Use
  Company Number: US-PFIZER INC-2019106829

PATIENT
  Age: 81 Year
  Sex: Female
  Weight: 54.43 kg

DRUGS (5)
  1. PREMARIN [Suspect]
     Active Substance: ESTROGENS, CONJUGATED
     Dosage: 0.5 G, TWICE WEEKLY (MONDAY AND THURSDAY AT 8PM) AFTER 2 WEEK OF DAILY USE THEN WEEKLY
     Route: 067
     Dates: start: 20200227
  2. PREMARIN [Suspect]
     Active Substance: ESTROGENS, CONJUGATED
     Dosage: UNK, WEEKLY
     Dates: start: 2018
  3. PREMARIN [Suspect]
     Active Substance: ESTROGENS, CONJUGATED
     Indication: ATROPHIC VULVOVAGINITIS
     Dosage: UNK, DAILY
     Route: 067
     Dates: start: 20190222
  4. PREMARIN [Suspect]
     Active Substance: ESTROGENS, CONJUGATED
     Indication: POLLAKIURIA
     Dosage: 1 G, 2X/WEEK
     Route: 067
  5. PREMARIN [Suspect]
     Active Substance: ESTROGENS, CONJUGATED
     Dosage: UNK, WEEKLY (COUPLE OF TIMES)
     Route: 067

REACTIONS (7)
  - Intentional dose omission [Unknown]
  - Body height decreased [Unknown]
  - Spinal fracture [Recovering/Resolving]
  - Off label use [Unknown]
  - Drug effective for unapproved indication [Unknown]
  - Product use issue [Unknown]
  - Illness [Unknown]

NARRATIVE: CASE EVENT DATE: 2018
